FAERS Safety Report 19452845 (Version 13)
Quarter: 2021Q4

REPORT INFORMATION
  Report Type: Report from Study
  Country: US (occurrence: US)
  Receive Date: 20210623
  Receipt Date: 20211114
  Transmission Date: 20220303
  Serious: Yes (Hospitalization, Other)
  Sender: FDA-Public Use
  Company Number: US-JNJFOC-20210551251

PATIENT
  Age: 78 Year
  Sex: Male
  Weight: 95.5 kg

DRUGS (9)
  1. SELEXIPAG [Suspect]
     Active Substance: SELEXIPAG
     Indication: Pulmonary arterial hypertension
     Route: 048
  2. SELEXIPAG [Suspect]
     Active Substance: SELEXIPAG
     Route: 048
  3. SELEXIPAG [Suspect]
     Active Substance: SELEXIPAG
     Route: 048
  4. MACITENTAN [Suspect]
     Active Substance: MACITENTAN
     Indication: Pulmonary arterial hypertension
     Route: 048
  5. MACITENTAN [Suspect]
     Active Substance: MACITENTAN
     Route: 048
  6. TYVASO [Suspect]
     Active Substance: TREPROSTINIL
     Indication: Pulmonary arterial hypertension
     Dosage: 3-9 BREATHS
  7. TYVASO [Suspect]
     Active Substance: TREPROSTINIL
     Dosage: 15 BREATHS FOUR TIMES A DAY
     Route: 065
  8. TYVASO [Suspect]
     Active Substance: TREPROSTINIL
     Dosage: 12 BREATHS FOUR TIMES A DAY
     Route: 065
  9. SILDENAFIL CITRATE [Concomitant]
     Active Substance: SILDENAFIL CITRATE

REACTIONS (13)
  - Syncope [Not Recovered/Not Resolved]
  - Pulmonary thrombosis [Unknown]
  - Pulmonary hypertension [Unknown]
  - Dizziness [Not Recovered/Not Resolved]
  - Dyspnoea [Not Recovered/Not Resolved]
  - Increased bronchial secretion [Unknown]
  - Tinnitus [Unknown]
  - Contusion [Unknown]
  - Limb injury [Unknown]
  - Arthralgia [Unknown]
  - Fall [Unknown]
  - Device breakage [Unknown]
  - Cardiomegaly [Unknown]

NARRATIVE: CASE EVENT DATE: 20210525
